FAERS Safety Report 17290124 (Version 5)
Quarter: 2020Q3

REPORT INFORMATION
  Report Type: Report from Study
  Country: CO (occurrence: CO)
  Receive Date: 20200120
  Receipt Date: 20200731
  Transmission Date: 20201102
  Serious: Yes (Hospitalization)
  Sender: FDA-Public Use
  Company Number: CO-TAKEDA-2019TUS049387

PATIENT
  Age: 30 Year
  Sex: Female
  Weight: 68 kg

DRUGS (2)
  1. VEDOLIZUMAB [Suspect]
     Active Substance: VEDOLIZUMAB
     Indication: COLITIS ULCERATIVE
     Dosage: 300 MILLIGRAM
     Route: 042
     Dates: start: 20190801
  2. VEDOLIZUMAB [Suspect]
     Active Substance: VEDOLIZUMAB
     Dosage: 300 MILLIGRAM, Q4WEEKS
     Route: 042
     Dates: start: 20200112

REACTIONS (17)
  - Myalgia [Unknown]
  - Dysmenorrhoea [Recovering/Resolving]
  - Muscular weakness [Unknown]
  - Abdominal pain [Recovering/Resolving]
  - Haemoglobin decreased [Recovered/Resolved]
  - Chills [Unknown]
  - Arthralgia [Unknown]
  - Rash [Unknown]
  - Rectal haemorrhage [Recovered/Resolved]
  - Rash maculo-papular [Unknown]
  - Pruritus [Unknown]
  - Off label use [Unknown]
  - Diarrhoea [Recovered/Resolved]
  - Haematochezia [Unknown]
  - Pyrexia [Recovering/Resolving]
  - Gastrointestinal motility disorder [Recovering/Resolving]
  - Back pain [Unknown]

NARRATIVE: CASE EVENT DATE: 201908
